FAERS Safety Report 16149748 (Version 1)
Quarter: 2019Q2

REPORT INFORMATION
  Report Type: Spontaneous
  Country: US (occurrence: US)
  Receive Date: 20190227
  Receipt Date: 20190227
  Transmission Date: 20190711
  Serious: Yes (Death)
  Sender: FDA-Public Use
  Company Number: None

PATIENT
  Age: 92 Year
  Sex: Male

DRUGS (1)
  1. POMALYST [Suspect]
     Active Substance: POMALIDOMIDE
     Indication: PLASMA CELL MYELOMA
     Route: 048
     Dates: start: 201812, end: 201902

REACTIONS (11)
  - Fall [None]
  - Humerus fracture [None]
  - Rib fracture [None]
  - Foot fracture [None]
  - Therapy cessation [None]
  - Pneumonia [None]
  - Skin laceration [None]
  - Skin haemorrhage [None]
  - Dysphagia [None]
  - Performance status decreased [None]
  - Atrial fibrillation [None]

NARRATIVE: CASE EVENT DATE: 20190222
